FAERS Safety Report 8665133 (Version 4)
Quarter: 2012Q4

REPORT INFORMATION
  Report Type: 
  Country: US (occurrence: US)
  Receive Date: 20120716
  Receipt Date: 20121011
  Transmission Date: 20130627
  Serious: Yes (Hospitalization, Other)
  Sender: FDA-Public Use
  Company Number: US-009507513-1207USA001263

PATIENT
  Sex: Male
  Weight: 184.4 kg

DRUGS (8)
  1. VICTRELIS [Suspect]
     Indication: HEPATITIS C
     Dosage: 800 mg, q8h
     Route: 048
     Dates: start: 20120424
  2. PEGINTRON [Suspect]
     Indication: HEPATITIS C
     Dosage: 150 Microgram, qw
     Route: 058
     Dates: start: 20120327
  3. RIBASPHERE [Suspect]
  4. LIPITOR [Concomitant]
  5. FLOMAX (MORNIFLUMATE) [Concomitant]
     Dosage: 0.4 mg, UNK
  6. PROMETHAZINE [Concomitant]
     Dosage: 25 mg, p.r.n
  7. LORTAB [Concomitant]
     Dosage: 5 mg, p.r.n
  8. PAXIL [Concomitant]
     Dosage: 10 mg, UNK

REACTIONS (1)
  - Cardiac disorder [Unknown]
